FAERS Safety Report 12540898 (Version 4)
Quarter: 2020Q3

REPORT INFORMATION
  Report Type: Report from Study
  Country: JP (occurrence: JP)
  Receive Date: 20160708
  Receipt Date: 20200916
  Transmission Date: 20201102
  Serious: Yes (Death, Hospitalization, Other)
  Sender: FDA-Public Use
  Company Number: JP-INCYTE CORPORATION-2016IN004161

PATIENT

DRUGS (3)
  1. JAKAVI [Suspect]
     Active Substance: RUXOLITINIB
     Dosage: 5 MG, BID
     Route: 048
     Dates: start: 20141114, end: 20141201
  2. JAKAVI [Suspect]
     Active Substance: RUXOLITINIB
     Indication: PRIMARY MYELOFIBROSIS
     Dosage: 15 MG, BID
     Route: 048
     Dates: start: 20140919, end: 20141016
  3. HYDREA [Concomitant]
     Active Substance: HYDROXYUREA
     Indication: PRIMARY MYELOFIBROSIS
     Dosage: 500 MG, UNK
     Route: 048
     Dates: start: 20140718, end: 20141002

REACTIONS (15)
  - Platelet count decreased [Recovering/Resolving]
  - Blood pressure systolic increased [Unknown]
  - Central nervous system lymphoma [Fatal]
  - Haemorrhage intracranial [Recovered/Resolved]
  - Anaemia [Recovered/Resolved]
  - Subdural haematoma [Not Recovered/Not Resolved]
  - Primary myelofibrosis [Fatal]
  - Platelet count decreased [Recovered/Resolved]
  - Abnormal behaviour [Unknown]
  - Anaemia [Recovering/Resolving]
  - Second primary malignancy [Fatal]
  - Hepatic function abnormal [Recovering/Resolving]
  - White blood cell count increased [Not Recovered/Not Resolved]
  - Speech disorder [Unknown]
  - Dizziness [Unknown]

NARRATIVE: CASE EVENT DATE: 20140926
